FAERS Safety Report 7525122-8 (Version None)
Quarter: 2011Q2

REPORT INFORMATION
  Report Type: 
  Country: None (occurrence: None)
  Receive Date: 20110606
  Receipt Date: 20110530
  Transmission Date: 20111010
  Serious: Yes (Other)
  Sender: FDA-Public Use
  Company Number: GR-US-EMD SERONO, INC.-7062144

PATIENT
  Sex: Female

DRUGS (1)
  1. REBIF [Suspect]

REACTIONS (4)
  - FREQUENT BOWEL MOVEMENTS [None]
  - FLATULENCE [None]
  - HEADACHE [None]
  - GAMMA-GLUTAMYLTRANSFERASE INCREASED [None]
